FAERS Safety Report 20973480 (Version 2)
Quarter: 2022Q2

REPORT INFORMATION
  Report Type: Report from Study
  Country: US (occurrence: US)
  Receive Date: 20220617
  Receipt Date: 20220628
  Transmission Date: 20220721
  Serious: Yes (Hospitalization, Other)
  Sender: FDA-Public Use
  Company Number: US-APELLIS-01221

PATIENT
  Age: 68 Year
  Sex: Female

DRUGS (6)
  1. PEGCETACOPLAN [Suspect]
     Active Substance: PEGCETACOPLAN
     Indication: Paroxysmal nocturnal haemoglobinuria
     Dosage: 1080 MG 0.5 WEEKS
     Route: 058
     Dates: start: 20220304
  2. PEGCETACOPLAN [Suspect]
     Active Substance: PEGCETACOPLAN
     Dosage: 1080 MG 0.5 WEEKS
     Route: 058
     Dates: start: 20220304
  3. PEGCETACOPLAN [Suspect]
     Active Substance: PEGCETACOPLAN
     Dosage: 1080 MILLIGRAM, EVERY THREE DAY
     Route: 058
     Dates: start: 20220401
  4. PEGCETACOPLAN [Suspect]
     Active Substance: PEGCETACOPLAN
     Dosage: 1080 MILLIGRAM, EVERY THREE DAY
     Route: 058
     Dates: start: 20220303
  5. BACTRIM [Concomitant]
     Active Substance: SULFAMETHOXAZOLE\TRIMETHOPRIM
     Indication: Product used for unknown indication
  6. OXYCONTIN [Concomitant]
     Active Substance: OXYCODONE HYDROCHLORIDE
     Indication: Product used for unknown indication

REACTIONS (10)
  - Osteomyelitis [Unknown]
  - Bacterial infection [Recovered/Resolved]
  - Fall [Unknown]
  - Haemoglobin decreased [Recovering/Resolving]
  - Infusion site bruising [Recovering/Resolving]
  - Diarrhoea [Recovering/Resolving]
  - Dysgeusia [Recovering/Resolving]
  - Fall [Unknown]
  - Asthenia [Unknown]
  - Fatigue [Recovered/Resolved]

NARRATIVE: CASE EVENT DATE: 20220305
